FAERS Safety Report 6497935-5 (Version None)
Quarter: 2009Q4

REPORT INFORMATION
  Report Type: 
  Country: None (occurrence: None)
  Receive Date: 20091215
  Receipt Date: 20091207
  Transmission Date: 20100525
  Serious: Yes (Hospitalization)
  Sender: FDA-Public Use
  Company Number: JP-ROCHE-638896

PATIENT
  Age: 60 Year
  Sex: Male

DRUGS (5)
  1. AVASTIN [Suspect]
     Indication: LARGE INTESTINE CARCINOMA
     Route: 041
     Dates: end: 20090529
  2. FLUOROURACIL [Suspect]
     Indication: DRUG USE FOR UNKNOWN INDICATION
     Dosage: ROUTE: INTRAVENOUS BOLUS
     Route: 042
     Dates: end: 20090529
  3. FLUOROURACIL [Suspect]
     Dosage: ROUTE: INTRAVENOUS DRIP
     Route: 042
     Dates: end: 20090501
  4. IRINOTECAN HCL [Concomitant]
     Route: 041
     Dates: end: 20090529
  5. CALCIUM LEVOFOLINATE [Concomitant]
     Route: 041
     Dates: end: 20090529

REACTIONS (1)
  - LEUKOENCEPHALOPATHY [None]
